FAERS Safety Report 24881514 (Version 1)
Quarter: 2025Q1

REPORT INFORMATION
  Report Type: Spontaneous
  Country: DE (occurrence: DE)
  Receive Date: 20250124
  Receipt Date: 20250124
  Transmission Date: 20250408
  Serious: Yes (Other)
  Sender: ALKEM
  Company Number: DE-ALKEM LABORATORIES LIMITED-DE-ALKEM-2024-26882

PATIENT
  Age: 71 Year
  Sex: Male

DRUGS (5)
  1. ESLICARBAZEPINE [Interacting]
     Active Substance: ESLICARBAZEPINE
     Indication: Epilepsy
     Dosage: 400 MILLIGRAM, QD
     Route: 065
  2. ESLICARBAZEPINE [Interacting]
     Active Substance: ESLICARBAZEPINE
     Dosage: 1200 MILLIGRAM, QD
     Route: 065
  3. PERAMPANEL [Interacting]
     Active Substance: PERAMPANEL
     Indication: Epilepsy
     Dosage: 10 MILLIGRAM, QD
     Route: 065
  4. PERAMPANEL [Interacting]
     Active Substance: PERAMPANEL
     Dosage: 8 MILLIGRAM, QD
     Route: 065
  5. VALPROIC ACID [Concomitant]
     Active Substance: VALPROIC ACID
     Indication: Epilepsy
     Route: 065

REACTIONS (2)
  - Drug reaction with eosinophilia and systemic symptoms [Recovering/Resolving]
  - Drug interaction [Unknown]
